FAERS Safety Report 14891875 (Version 1)
Quarter: 2018Q2

REPORT INFORMATION
  Report Type: Spontaneous
  Country: FR (occurrence: FR)
  Receive Date: 20180514
  Receipt Date: 20180514
  Transmission Date: 20180711
  Serious: Yes (Disabling, Other)
  Sender: FDA-Public Use
  Company Number: FR-MERCK KGAA-2047702

PATIENT
  Age: 39 Year
  Sex: Male

DRUGS (1)
  1. NOVOTHYROX [Suspect]
     Active Substance: LEVOTHYROXINE SODIUM
     Indication: PRODUCT USED FOR UNKNOWN INDICATION

REACTIONS (36)
  - Gingivitis [Recovered/Resolved]
  - Pollakiuria [Recovered/Resolved]
  - Fatigue [Recovered/Resolved]
  - Alopecia [Recovered/Resolved]
  - Impaired work ability [Recovered/Resolved]
  - Social avoidant behaviour [Recovered/Resolved]
  - Hyperthyroidism [Recovered/Resolved]
  - Amnesia [Recovered/Resolved]
  - Sluggishness [Recovered/Resolved]
  - Bedridden [Recovered/Resolved]
  - Acne [Recovered/Resolved]
  - Glomerular filtration rate decreased [Recovered/Resolved]
  - Hypersensitivity [Recovered/Resolved]
  - Muscle spasms [Recovered/Resolved]
  - Aphthous ulcer [Recovered/Resolved]
  - Malaise [Recovered/Resolved]
  - Impaired driving ability [Recovered/Resolved]
  - Self esteem decreased [Recovered/Resolved]
  - Dry eye [Recovered/Resolved]
  - Depression [Recovered/Resolved]
  - Insomnia [Recovered/Resolved]
  - Confusional state [Recovered/Resolved]
  - Areflexia [Recovered/Resolved]
  - Blood thyroid stimulating hormone increased [Recovered/Resolved]
  - Erythema [Recovered/Resolved]
  - Impaired quality of life [Recovered/Resolved]
  - Communication disorder [Recovered/Resolved]
  - Nausea [Recovered/Resolved]
  - Chest pain [Recovered/Resolved]
  - Loss of personal independence in daily activities [Recovered/Resolved]
  - Gait disturbance [Recovered/Resolved]
  - Hypothyroidism [Recovered/Resolved]
  - Suicidal ideation [Recovered/Resolved]
  - Exophthalmos [Recovered/Resolved]
  - Loss of libido [Recovered/Resolved]
  - Tachycardia [Recovered/Resolved]

NARRATIVE: CASE EVENT DATE: 20170705
